FAERS Safety Report 4496686-6 (Version None)
Quarter: 2004Q4

REPORT INFORMATION
  Report Type: 
  Country: None (occurrence: None)
  Receive Date: 20041108
  Receipt Date: 20041108
  Transmission Date: 20050328
  Serious: Yes (Other)
  Sender: FDA-Public Use
  Company Number: None

PATIENT
  Age: 20 Year
  Sex: Male
  Weight: 108.8633 kg

DRUGS (1)
  1. KLONOPIN [Suspect]
     Indication: SCHIZOPHRENIA, PARANOID TYPE
     Dosage: 0.5MG TID # 90

REACTIONS (6)
  - AGITATION [None]
  - PARANOIA [None]
  - PHARMACEUTICAL PRODUCT COMPLAINT [None]
  - SUSPICIOUSNESS [None]
  - THERAPEUTIC RESPONSE DECREASED [None]
  - TREATMENT NONCOMPLIANCE [None]
